FAERS Safety Report 6866302-4 (Version None)
Quarter: 2010Q3

REPORT INFORMATION
  Report Type: 
  Country: None (occurrence: None)
  Receive Date: 20100722
  Receipt Date: 20100714
  Transmission Date: 20110219
  Serious: Yes (Hospitalization)
  Sender: FDA-Public Use
  Company Number: JP-SHIRE-SPV1-2010-01292

PATIENT

DRUGS (3)
  1. FOSRENOL [Suspect]
     Indication: HYPERPHOSPHATAEMIA
     Route: 048
     Dates: start: 20100118, end: 20100711
  2. FOSRENOL [Suspect]
     Route: 048
     Dates: start: 20091028
  3. FOSRENOL [Suspect]
     Route: 048
     Dates: start: 20091209

REACTIONS (1)
  - ILEUS [None]
